APPROVED DRUG PRODUCT: ERYTHROMYCIN ETHYLSUCCINATE
Active Ingredient: ERYTHROMYCIN ETHYLSUCCINATE
Strength: EQ 400MG BASE/5ML
Dosage Form/Route: SUSPENSION;ORAL
Application: A062177 | Product #002
Applicant: DISTA PRODUCTS CO DIV ELI LILLY AND CO
Approved: Approved Prior to Jan 1, 1982 | RLD: No | RS: No | Type: DISCN